FAERS Safety Report 9908547 (Version 3)
Quarter: 2014Q1

REPORT INFORMATION
  Report Type: Spontaneous
  Country: US (occurrence: US)
  Receive Date: 20140219
  Receipt Date: 20140228
  Transmission Date: 20141002
  Serious: Yes (Hospitalization, Disabling, Other)
  Sender: FDA-Public Use
  Company Number: US-009507513-1203USA02908

PATIENT
  Sex: Female
  Weight: 62.59 kg

DRUGS (3)
  1. FOSAMAX [Suspect]
     Dosage: 70 MG, QW
     Route: 048
  2. ALENDRONATE SODIUM [Suspect]
     Dosage: 70 MG, UNK
     Route: 048
  3. SYNTHROID [Concomitant]
     Indication: HYPOTHYROIDISM
     Dosage: 125-300 MICROGRAM, QD
     Route: 048

REACTIONS (54)
  - Femur fracture [Not Recovered/Not Resolved]
  - Intramedullary rod insertion [Unknown]
  - Bone disorder [Not Recovered/Not Resolved]
  - Skin graft [Unknown]
  - Vascular graft [Unknown]
  - Joint arthroplasty [Unknown]
  - Renal failure acute [Recovered/Resolved]
  - Blindness unilateral [Unknown]
  - Breast cancer [Unknown]
  - Pneumonia haemophilus [Recovered/Resolved]
  - Hypokalaemia [Recovered/Resolved]
  - Dehydration [Recovered/Resolved]
  - Metabolic acidosis [Recovered/Resolved]
  - Colitis ischaemic [Recovered/Resolved]
  - Vertebroplasty [Unknown]
  - Fall [Unknown]
  - Osteoporosis [Unknown]
  - Ankle fracture [Unknown]
  - Atrial fibrillation [Unknown]
  - Ventricular extrasystoles [Unknown]
  - Toe amputation [Unknown]
  - Strabismus [Unknown]
  - Mitral valve incompetence [Unknown]
  - Tricuspid valve incompetence [Unknown]
  - Anaemia of chronic disease [Not Recovered/Not Resolved]
  - Anxiety [Unknown]
  - Osteoarthritis [Unknown]
  - Dementia [Unknown]
  - Intermittent claudication [Unknown]
  - Spinal compression fracture [Unknown]
  - Spinal osteoarthritis [Unknown]
  - Cardiac failure congestive [Recovered/Resolved]
  - Ischaemic ulcer [Unknown]
  - Colitis ulcerative [Unknown]
  - Lung infiltration [Unknown]
  - Malnutrition [Unknown]
  - Arteriosclerosis coronary artery [Unknown]
  - Splenic granuloma [Unknown]
  - Bone lesion [Unknown]
  - Rib fracture [Not Recovered/Not Resolved]
  - Aortic dilatation [Unknown]
  - Pleural fibrosis [Unknown]
  - Bronchiectasis [Unknown]
  - Osteosclerosis [Unknown]
  - Pulmonary hypertension [Unknown]
  - Osteomyelitis [Unknown]
  - Glaucoma [Unknown]
  - Hysterectomy [Unknown]
  - Rectal ulcer [Unknown]
  - Intestinal mass [Unknown]
  - Gastritis atrophic [Unknown]
  - Peripheral vascular disorder [Unknown]
  - Peptic ulcer [Unknown]
  - Constipation [Unknown]
